FAERS Safety Report 9097156 (Version 2)
Quarter: 2013Q1

REPORT INFORMATION
  Report Type: Report from Study
  Country: US (occurrence: US)
  Receive Date: 20130212
  Receipt Date: 20130222
  Transmission Date: 20140127
  Serious: Yes (Hospitalization)
  Sender: FDA-Public Use
  Company Number: US-US-EMD SERONO, INC.-7192172

PATIENT
  Age: 27 Year
  Sex: Female

DRUGS (5)
  1. REBIF [Suspect]
     Indication: MULTIPLE SCLEROSIS
     Route: 058
     Dates: start: 2007, end: 20130206
  2. REBIF [Suspect]
     Route: 058
     Dates: start: 20120927
  3. REBIF [Suspect]
     Route: 058
     Dates: start: 201301, end: 20130206
  4. IRON [Concomitant]
     Indication: BLOOD IRON DECREASED
  5. VITAMIN D [Concomitant]
     Indication: PRODUCT USED FOR UNKNOWN INDICATION

REACTIONS (2)
  - Grand mal convulsion [Recovering/Resolving]
  - Pneumonia aspiration [Recovering/Resolving]
